FAERS Safety Report 5280162-7 (Version None)
Quarter: 2007Q1

REPORT INFORMATION
  Report Type: 
  Country: None (occurrence: None)
  Receive Date: 20070326
  Receipt Date: 20070326
  Transmission Date: 20070707
  Serious: Yes (Other)
  Sender: FDA-Public Use
  Company Number: None

PATIENT
  Age: 3 Year
  Sex: Female
  Weight: 13.1543 kg

DRUGS (2)
  1. CEFZIL [Suspect]
     Indication: OTITIS MEDIA
     Dosage: 4ML Q 12 HOURS PO
     Route: 048
     Dates: start: 20070314, end: 20070316
  2. CEFZIL [Suspect]
     Indication: UPPER RESPIRATORY TRACT INFECTION
     Dosage: 4ML Q 12 HOURS PO
     Route: 048
     Dates: start: 20070314, end: 20070316

REACTIONS (2)
  - HALLUCINATION, VISUAL [None]
  - INSOMNIA [None]
